FAERS Safety Report 18863510 (Version 1)
Quarter: 2021Q1

REPORT INFORMATION
  Report Type: Spontaneous
  Country: JP (occurrence: JP)
  Receive Date: 20210209
  Receipt Date: 20210209
  Transmission Date: 20210420
  Serious: Yes (Death)
  Sender: FDA-Public Use
  Company Number: JP-TEVA-2021-JP-1877117

PATIENT
  Age: 15 Day
  Sex: Male

DRUGS (1)
  1. MIRTAZAPINE. [Suspect]
     Active Substance: MIRTAZAPINE
     Indication: TOXICITY TO VARIOUS AGENTS
     Dosage: MIXED WITH BABY FORMULA MILK
     Route: 048

REACTIONS (2)
  - Death [Fatal]
  - Toxicity to various agents [Fatal]
